FAERS Safety Report 24444217 (Version 1)
Quarter: 2024Q4

REPORT INFORMATION
  Report Type: Spontaneous
  Country: US (occurrence: None)
  Receive Date: 20241015
  Receipt Date: 20241015
  Transmission Date: 20250114
  Serious: Yes (Hospitalization)
  Sender: Public
  Company Number: None

PATIENT
  Age: 83 Year
  Sex: Male
  Weight: 105 kg

DRUGS (1)
  1. FOSINOPRIL NA [Suspect]
     Active Substance: FOSINOPRIL SODIUM
     Indication: Hypertension
     Dosage: FREQUENCY : DAILY;?
     Route: 048
     Dates: start: 20111019, end: 20240603

REACTIONS (1)
  - Angioedema [None]

NARRATIVE: CASE EVENT DATE: 20240603
